FAERS Safety Report 9891987 (Version 10)
Quarter: 2014Q4

REPORT INFORMATION
  Report Type: Report from Study
  Country: DE (occurrence: DE)
  Receive Date: 20140212
  Receipt Date: 20141112
  Transmission Date: 20150529
  Serious: Yes (Hospitalization)
  Sender: FDA-Public Use
  Company Number: DE-ROCHE-1347229

PATIENT
  Age: 71 Year
  Sex: Female
  Weight: 64 kg

DRUGS (17)
  1. ZOPICLON [Concomitant]
     Active Substance: ZOPICLONE
     Route: 065
     Dates: start: 20140611, end: 20140611
  2. VISMODEGIB [Suspect]
     Active Substance: VISMODEGIB
     Indication: ACUTE MYELOID LEUKAEMIA
     Dosage: DATE OF MOST RECENT DOSE PRIOR TO FIRST EPISODE OF  FEVER OF UNKNOWN ORIGIN: 06/FEB/2014.?DATE OF MO
     Route: 048
     Dates: start: 20131202, end: 20140514
  3. ZOPICLON [Concomitant]
     Active Substance: ZOPICLONE
     Route: 065
     Dates: start: 20140607, end: 20140608
  4. AMOXICILLIN. [Concomitant]
     Active Substance: AMOXICILLIN
     Indication: INFECTION PROPHYLAXIS
     Route: 065
     Dates: start: 20140610
  5. OMEPRAZOLE. [Concomitant]
     Active Substance: OMEPRAZOLE
     Indication: ABDOMINAL PAIN
     Route: 065
     Dates: start: 201310
  6. SEVIKAR [Concomitant]
     Active Substance: AMLODIPINE BESYLATE\OLMESARTAN MEDOXOMIL
     Indication: HYPERTENSION
     Dosage: 40/5.
     Route: 065
     Dates: start: 20140224
  7. RINGER SOLUTION [Concomitant]
     Indication: HYPOTENSION
     Route: 065
     Dates: start: 20140603, end: 20140604
  8. ZOPICLON [Concomitant]
     Active Substance: ZOPICLONE
     Indication: INSOMNIA
     Route: 065
     Dates: start: 20140604, end: 20140604
  9. BISOPROLOL [Concomitant]
     Active Substance: BISOPROLOL
     Indication: HYPERTENSION
  10. PRAVASTATIN [Concomitant]
     Active Substance: PRAVASTATIN\PRAVASTATIN SODIUM
     Indication: PROPHYLAXIS
  11. OMEPRAZOLE. [Concomitant]
     Active Substance: OMEPRAZOLE
     Indication: DYSPEPSIA
  12. ACETYLSALICYLIC ACID [Concomitant]
     Active Substance: ASPIRIN
     Indication: CORONARY ARTERY DISEASE
     Route: 065
     Dates: start: 20140529
  13. CLEXANE [Concomitant]
     Active Substance: ENOXAPARIN SODIUM
     Indication: THROMBOSIS PROPHYLAXIS
     Route: 065
     Dates: start: 20140602, end: 20140613
  14. RAMIPRIL. [Concomitant]
     Active Substance: RAMIPRIL
     Indication: HYPERTENSION
     Route: 065
     Dates: start: 20140613
  15. CASPOFUNGIN [Concomitant]
     Active Substance: CASPOFUNGIN
     Indication: LIVER ABSCESS
     Route: 065
     Dates: start: 20140512, end: 20140516
  16. COTRIM D.S. [Concomitant]
     Active Substance: SULFAMETHOXAZOLE\TRIMETHOPRIM
     Indication: INFECTION PROPHYLAXIS
     Route: 065
     Dates: start: 201310
  17. HYDROCHLOROTHIAZID [Concomitant]
     Active Substance: HYDROCHLOROTHIAZIDE
     Indication: OEDEMA PERIPHERAL
     Route: 065
     Dates: start: 20140606

REACTIONS (4)
  - Pyrexia [Recovered/Resolved]
  - Febrile neutropenia [Recovered/Resolved]
  - Urinary tract infection [Recovered/Resolved]
  - Vaginal abscess [Recovered/Resolved]

NARRATIVE: CASE EVENT DATE: 20140206
